FAERS Safety Report 9678211 (Version 2)
Quarter: 2013Q4

REPORT INFORMATION
  Report Type: Spontaneous
  Country: AT (occurrence: AT)
  Receive Date: 20131108
  Receipt Date: 20131116
  Transmission Date: 20140711
  Serious: No
  Sender: FDA-Public Use
  Company Number: AT-ABBVIE-13P-009-1165392-00

PATIENT
  Age: 46 Year
  Sex: Female
  Weight: 89 kg

DRUGS (3)
  1. HUMIRA [Suspect]
     Indication: SPONDYLITIS
     Dosage: TOOK TWO DOSES (EOW)
     Route: 058
     Dates: start: 20131005, end: 20131019
  2. HUMIRA [Suspect]
     Indication: ANKYLOSING SPONDYLITIS
  3. TRITTICO [Suspect]
     Dosage: 0-0-0-2/3

REACTIONS (9)
  - Malaise [Not Recovered/Not Resolved]
  - Abdominal pain upper [Unknown]
  - Vertigo [Unknown]
  - Headache [Not Recovered/Not Resolved]
  - Hypoaesthesia [Not Recovered/Not Resolved]
  - Paraesthesia [Unknown]
  - Paraesthesia [Unknown]
  - Blood pressure abnormal [Unknown]
  - Drug intolerance [Unknown]
